FAERS Safety Report 13317097 (Version 2)
Quarter: 2017Q1

REPORT INFORMATION
  Report Type: Report from Study
  Country: US (occurrence: US)
  Receive Date: 20170310
  Receipt Date: 20170316
  Transmission Date: 20170428
  Serious: No
  Sender: FDA-Public Use
  Company Number: PHEH2017US007132

PATIENT
  Sex: Female

DRUGS (1)
  1. AFINITOR [Suspect]
     Active Substance: EVEROLIMUS
     Indication: PRODUCT USED FOR UNKNOWN INDICATION
     Route: 065

REACTIONS (5)
  - Blood calcium decreased [Unknown]
  - Blood potassium decreased [Unknown]
  - Blood electrolytes decreased [Unknown]
  - Blood albumin decreased [Unknown]
  - Blood phosphorus decreased [Unknown]
